FAERS Safety Report 9607235 (Version 2)
Quarter: 2013Q4

REPORT INFORMATION
  Report Type: Report from Study
  Country: MX (occurrence: MX)
  Receive Date: 20131009
  Receipt Date: 20131009
  Transmission Date: 20140711
  Serious: Yes (Death)
  Sender: FDA-Public Use
  Company Number: MX-ROCHE-1212379

PATIENT
  Age: 57 Year
  Sex: Female

DRUGS (1)
  1. XELODA [Suspect]
     Indication: GASTRIC CANCER
     Route: 048

REACTIONS (5)
  - Death [Fatal]
  - Dyspepsia [Not Recovered/Not Resolved]
  - Paraesthesia [Not Recovered/Not Resolved]
  - Nausea [Recovering/Resolving]
  - Diarrhoea [Recovering/Resolving]
